FAERS Safety Report 13604764 (Version 1)
Quarter: 2017Q2

REPORT INFORMATION
  Report Type: Spontaneous
  Country: US (occurrence: US)
  Receive Date: 20170602
  Receipt Date: 20170602
  Transmission Date: 20170830
  Serious: Yes (Hospitalization)
  Sender: FDA-Public Use
  Company Number: US-GLENMARK PHARMACEUTICALS-2017GMK027690

PATIENT
  Age: 37 Year
  Sex: Female

DRUGS (2)
  1. TOPIRAMATE. [Suspect]
     Active Substance: TOPIRAMATE
     Indication: BIPOLAR DISORDER
     Dosage: 100 UNK, BID
     Route: 048
  2. DIAZEPAM. [Concomitant]
     Active Substance: DIAZEPAM
     Indication: BIPOLAR DISORDER
     Dosage: UNK
     Route: 065

REACTIONS (15)
  - Ataxia [Recovering/Resolving]
  - Dysarthria [Recovering/Resolving]
  - Somnolence [Recovering/Resolving]
  - Intentional overdose [Unknown]
  - Seizure [Recovering/Resolving]
  - Suicidal ideation [Unknown]
  - Toxicity to various agents [Unknown]
  - Muscle twitching [Recovering/Resolving]
  - Metabolic acidosis [Not Recovered/Not Resolved]
  - Clonus [Recovered/Resolved]
  - Coma [Recovered/Resolved]
  - Nystagmus [Recovering/Resolving]
  - Treatment noncompliance [Unknown]
  - Unresponsive to stimuli [Recovering/Resolving]
  - Product use in unapproved indication [Unknown]
